FAERS Safety Report 7953657-2 (Version None)
Quarter: 2011Q4

REPORT INFORMATION
  Report Type: 
  Country: None (occurrence: None)
  Receive Date: 20111202
  Receipt Date: 20111124
  Transmission Date: 20120403
  Serious: Yes (Other)
  Sender: FDA-Public Use
  Company Number: CN-JNJFOC-20111012366

PATIENT
  Sex: Female
  Weight: 13 kg

DRUGS (3)
  1. TOPAMAX [Suspect]
     Indication: EPILEPSY
     Route: 048
     Dates: start: 20111014
  2. GINKGO BILOBA LEAF EXTRACT [Concomitant]
     Route: 065
  3. TOPAMAX [Suspect]
     Dosage: TOOK 0.5 TABLET
     Route: 048
     Dates: start: 20110801, end: 20111013

REACTIONS (5)
  - CONVULSION [None]
  - ALTERED STATE OF CONSCIOUSNESS [None]
  - TREMOR [None]
  - ERYTHEMA [None]
  - DRUG PRESCRIBING ERROR [None]
